FAERS Safety Report 13121683 (Version 1)
Quarter: 2017Q1

REPORT INFORMATION
  Report Type: Spontaneous
  Country: US (occurrence: US)
  Receive Date: 20170116
  Receipt Date: 20170116
  Transmission Date: 20170428
  Serious: Yes (Other)
  Sender: FDA-Public Use
  Company Number: None

PATIENT
  Age: 74 Year
  Sex: Female
  Weight: 81.72 kg

DRUGS (3)
  1. DULCOLAX (BISACODYL) [Suspect]
     Active Substance: BISACODYL
     Indication: COLONOSCOPY
     Dosage: 5 MG 1/4/17 W PILLS 1/5/17 W PILLS BY MOUTH
     Route: 048
     Dates: start: 20160104, end: 20160105
  2. ATENOLOL. [Concomitant]
     Active Substance: ATENOLOL
  3. FOSINOPRIL [Concomitant]
     Active Substance: FOSINOPRIL

REACTIONS (3)
  - Headache [None]
  - Cardiac disorder [None]
  - Asthenia [None]

NARRATIVE: CASE EVENT DATE: 20170105
